FAERS Safety Report 6182280-8 (Version None)
Quarter: 2009Q2

REPORT INFORMATION
  Report Type: 
  Country: None (occurrence: None)
  Receive Date: 20090506
  Receipt Date: 20090506
  Transmission Date: 20091009
  Serious: Yes (Hospitalization)
  Sender: FDA-Public Use
  Company Number: None

PATIENT
  Age: 58 Year
  Sex: Male
  Weight: 85.5 kg

DRUGS (3)
  1. ERBITUX [Suspect]
     Indication: HEAD AND NECK CANCER
     Dosage: 250MG/M2 WEEKLY IV DRIP ONCE/WEEK
     Route: 041
     Dates: start: 20090223, end: 20090330
  2. CARBOPLATIN [Concomitant]
  3. TAXOL [Concomitant]

REACTIONS (14)
  - DEHYDRATION [None]
  - DIARRHOEA [None]
  - DIZZINESS POSTURAL [None]
  - EJECTION FRACTION DECREASED [None]
  - FATIGUE [None]
  - HYPOPHAGIA [None]
  - HYPOTENSION [None]
  - HYPOVOLAEMIA [None]
  - MUCOSAL INFLAMMATION [None]
  - NEUTROPENIA [None]
  - PYREXIA [None]
  - REGURGITATION [None]
  - RENAL FAILURE ACUTE [None]
  - TACHYCARDIA [None]
